FAERS Safety Report 20882732 (Version 1)
Quarter: 2022Q2

REPORT INFORMATION
  Report Type: Spontaneous
  Country: IN (occurrence: None)
  Receive Date: 20220527
  Receipt Date: 20220527
  Transmission Date: 20220721
  Serious: Yes (Other)
  Sender: FDA-Public Use
  Company Number: IN-ACS-20220009

PATIENT
  Sex: Female

DRUGS (1)
  1. PENICILLIN G [Suspect]
     Active Substance: PENICILLIN G
     Indication: Congenital syphilis
     Dosage: ()

REACTIONS (2)
  - Hypertransaminasaemia [Unknown]
  - Hyperbilirubinaemia [Unknown]
